FAERS Safety Report 10432418 (Version 1)
Quarter: 2014Q3

REPORT INFORMATION
  Report Type: Spontaneous
  Country: US (occurrence: None)
  Receive Date: 20140904
  Receipt Date: 20140904
  Transmission Date: 20150326
  Serious: Yes (Other)
  Sender: FDA-Public Use
  Company Number: None

PATIENT
  Age: 69 Year
  Sex: Male
  Weight: 70.31 kg

DRUGS (1)
  1. ZOFRAN [Suspect]
     Active Substance: ONDANSETRON HYDROCHLORIDE
     Indication: DIZZINESS
     Route: 048
     Dates: start: 20140829, end: 20140902

REACTIONS (7)
  - Intestinal dilatation [None]
  - Constipation [None]
  - Discomfort [None]
  - Infrequent bowel movements [None]
  - Gait disturbance [None]
  - Stress [None]
  - Decreased activity [None]

NARRATIVE: CASE EVENT DATE: 20140903
